FAERS Safety Report 23350011 (Version 1)
Quarter: 2023Q4

REPORT INFORMATION
  Report Type: Spontaneous
  Country: US (occurrence: US)
  Receive Date: 20231229
  Receipt Date: 20231229
  Transmission Date: 20240110
  Serious: No
  Sender: FDA-Public Use
  Company Number: US-SEATTLE GENETICS-2023SGN07248

PATIENT
  Age: 60 Year
  Sex: Male

DRUGS (2)
  1. PADCEV [Suspect]
     Active Substance: ENFORTUMAB VEDOTIN-EJFV
     Indication: Bladder cancer
     Dosage: 1 MG/KG, CYCLIC (DAY 1+8, Q28D)
     Route: 065
  2. ADCETRIS [Suspect]
     Active Substance: BRENTUXIMAB VEDOTIN
     Indication: Product used for unknown indication
     Route: 042
     Dates: start: 20230706, end: 20230706

REACTIONS (3)
  - Wrong product administered [Recovered/Resolved]
  - Wrong patient received product [Recovered/Resolved]
  - Product confusion [Recovered/Resolved]

NARRATIVE: CASE EVENT DATE: 20230706
